FAERS Safety Report 9632614 (Version 3)
Quarter: 2014Q1

REPORT INFORMATION
  Report Type: Spontaneous
  Country: US (occurrence: US)
  Receive Date: 20131018
  Receipt Date: 20140303
  Transmission Date: 20141002
  Serious: Yes (Other)
  Sender: FDA-Public Use
  Company Number: US-GLAXOSMITHKLINE-A1045581A

PATIENT
  Age: 69 Year
  Sex: Female

DRUGS (2)
  1. MALARONE [Suspect]
     Indication: MALARIA PROPHYLAXIS
     Dosage: 1TAB SINGLE DOSE
     Route: 048
     Dates: start: 20131008, end: 20131008
  2. NO CONCURRENT MEDICATION [Concomitant]

REACTIONS (10)
  - Ulcer haemorrhage [Recovering/Resolving]
  - Mouth ulceration [Recovering/Resolving]
  - Gingival bleeding [Recovering/Resolving]
  - Lichen planus [Unknown]
  - Weight decreased [Unknown]
  - Oral pain [Unknown]
  - Gingivitis [Unknown]
  - Excoriation [Unknown]
  - Stomatitis [Unknown]
  - Thermal burn [Unknown]
